FAERS Safety Report 15881817 (Version 2)
Quarter: 2019Q2

REPORT INFORMATION
  Report Type: Spontaneous
  Country: US (occurrence: US)
  Receive Date: 20190128
  Receipt Date: 20190624
  Transmission Date: 20190711
  Serious: No
  Sender: FDA-Public Use
  Company Number: US-SA-2019SA021185

PATIENT
  Age: 24 Year
  Sex: Male

DRUGS (2)
  1. DUPIXENT [Suspect]
     Active Substance: DUPILUMAB
     Dosage: 300 MG, QOW
     Route: 058
     Dates: start: 20180113
  2. DUPIXENT [Suspect]
     Active Substance: DUPILUMAB
     Indication: DERMATITIS ATOPIC
     Dosage: 300 MG, QOW
     Route: 058
     Dates: start: 2017

REACTIONS (4)
  - Product dose omission [Recovered/Resolved]
  - Rash [Not Recovered/Not Resolved]
  - Drug ineffective [Not Recovered/Not Resolved]
  - Pruritus [Not Recovered/Not Resolved]
